FAERS Safety Report 23123210 (Version 3)
Quarter: 2024Q1

REPORT INFORMATION
  Report Type: Report from Study
  Country: US (occurrence: US)
  Receive Date: 20231030
  Receipt Date: 20240125
  Transmission Date: 20240409
  Serious: Yes (Other)
  Sender: FDA-Public Use
  Company Number: US-002147023-NVSC2023US228641

PATIENT
  Sex: Female

DRUGS (2)
  1. KESIMPTA [Suspect]
     Active Substance: OFATUMUMAB
     Indication: Multiple sclerosis
     Dosage: 20 MG, QMO
     Route: 058
  2. KESIMPTA [Suspect]
     Active Substance: OFATUMUMAB
     Dosage: 20MG/0.4ML MONTHLY
     Route: 058
     Dates: start: 202309

REACTIONS (7)
  - Immunosuppression [Unknown]
  - Chills [Recovered/Resolved]
  - Cough [Recovered/Resolved]
  - Nasal congestion [Unknown]
  - Rhinorrhoea [Recovered/Resolved]
  - Productive cough [Recovered/Resolved]
  - Illness [Unknown]
